FAERS Safety Report 13502737 (Version 5)
Quarter: 2017Q3

REPORT INFORMATION
  Report Type: Spontaneous
  Country: CZ (occurrence: CZ)
  Receive Date: 20170502
  Receipt Date: 20170726
  Transmission Date: 20171127
  Serious: Yes (Death)
  Sender: FDA-Public Use
  Company Number: CZ-ROCHE-1929475

PATIENT
  Age: 70 Year
  Sex: Female
  Weight: 75 kg

DRUGS (3)
  1. ACTILYSE [Suspect]
     Active Substance: ALTEPLASE
     Indication: ISCHAEMIC STROKE
     Route: 042
     Dates: start: 20170427, end: 20170427
  2. ACTILYSE [Suspect]
     Active Substance: ALTEPLASE
     Route: 042
     Dates: start: 20170427, end: 20170427
  3. EBRANTIL [Concomitant]
     Active Substance: URAPIDIL
     Indication: HYPERTENSION
     Dosage: DOSE WAS ADMINISTERED APPROXIMATELY AT15:30 HOURS BEFORE THE ADMINISTRATION OF ALTEPLASE (50).
     Route: 040
     Dates: start: 20170427

REACTIONS (5)
  - Anaphylactic reaction [Fatal]
  - Soft tissue swelling [Fatal]
  - Angioedema [Fatal]
  - Product quality issue [Fatal]
  - Pulmonary oedema [Fatal]

NARRATIVE: CASE EVENT DATE: 20170427
